FAERS Safety Report 10227496 (Version 1)
Quarter: 2014Q2

REPORT INFORMATION
  Report Type: Spontaneous
  Country: US (occurrence: US)
  Receive Date: 20140610
  Receipt Date: 20140610
  Transmission Date: 20141212
  Serious: Yes (Hospitalization)
  Sender: FDA-Public Use
  Company Number: PHEH2014US011481

PATIENT
  Sex: Male

DRUGS (2)
  1. CLOZARIL [Suspect]
     Dosage: UNK
  2. LATUDA [Suspect]
     Dosage: UNK

REACTIONS (8)
  - Drooling [Unknown]
  - Insomnia [Unknown]
  - Pyrexia [Unknown]
  - Urinary retention [Unknown]
  - Cough [Unknown]
  - Personality change [Unknown]
  - Decreased appetite [Unknown]
  - White blood cell count increased [Unknown]
